FAERS Safety Report 7377430-1 (Version None)
Quarter: 2011Q1

REPORT INFORMATION
  Report Type: 
  Country: None (occurrence: None)
  Receive Date: 20110316
  Receipt Date: 20110302
  Transmission Date: 20110831
  Serious: Yes (Other)
  Sender: FDA-Public Use
  Company Number: 1000019205

PATIENT
  Age: 75 Year
  Sex: Female
  Weight: 75 kg

DRUGS (1)
  1. ROFLUMILAST (ROFLUMILAST) (TABLETS) [Suspect]
     Indication: CHRONIC OBSTRUCTIVE PULMONARY DISEASE
     Dosage: 500 MCG, ORAL
     Route: 048
     Dates: start: 20110211, end: 20110302

REACTIONS (7)
  - ASTHENIA [None]
  - LISTLESS [None]
  - NAUSEA [None]
  - DECREASED APPETITE [None]
  - WEIGHT DECREASED [None]
  - DIZZINESS [None]
  - CARDIOVASCULAR INSUFFICIENCY [None]
